FAERS Safety Report 6768867-X (Version None)
Quarter: 2010Q2

REPORT INFORMATION
  Report Type: 
  Country: None (occurrence: None)
  Receive Date: 20100611
  Receipt Date: 20100525
  Transmission Date: 20101027
  Serious: Yes (Other)
  Sender: FDA-Public Use
  Company Number: B0659004A

PATIENT
  Age: 68 Year
  Sex: Male

DRUGS (2)
  1. ROPINIROLE HYDROCHLORIDE [Suspect]
     Indication: PARKINSON'S DISEASE
  2. ENTACAPONE [Concomitant]

REACTIONS (8)
  - BALANCE DISORDER [None]
  - CEREBRAL ATROPHY [None]
  - FALL [None]
  - HALLUCINATION, VISUAL [None]
  - HYPERSEXUALITY [None]
  - INCORRECT DOSE ADMINISTERED [None]
  - PROGRESSIVE SUPRANUCLEAR PALSY [None]
  - STEREOTYPY [None]
